FAERS Safety Report 10112290 (Version 2)
Quarter: 2014Q2

REPORT INFORMATION
  Report Type: Spontaneous
  Country: FR (occurrence: FR)
  Receive Date: 20140425
  Receipt Date: 20140506
  Transmission Date: 20141212
  Serious: Yes (Life-Threatening, Other)
  Sender: FDA-Public Use
  Company Number: FR-PFIZER INC-2014113315

PATIENT
  Age: 73 Year
  Sex: Female

DRUGS (12)
  1. SOLU-MEDROL [Suspect]
     Indication: OVARIAN EPITHELIAL CANCER
     Dosage: UNK
     Route: 041
     Dates: start: 20130726
  2. AVASTIN [Suspect]
     Indication: OVARIAN EPITHELIAL CANCER
     Dosage: 25 MG/ML; UNSPECIFIED DOSAGE
     Route: 041
     Dates: start: 20130726, end: 20131126
  3. CAELYX [Suspect]
     Indication: OVARIAN EPITHELIAL CANCER
     Dosage: 2 MG/ML, DOSAGE UNKNOWN
     Route: 041
     Dates: start: 20130726
  4. ZOPHREN [Suspect]
     Indication: PREMEDICATION
     Dosage: UNK
     Dates: start: 20130726
  5. LAMALINE [Suspect]
     Dosage: 5 TO 6 TABLETS DAILY
     Route: 048
     Dates: start: 20131016, end: 20140328
  6. COVERSYL [Concomitant]
     Dosage: 4 MG, 1X/DAY
  7. XANAX [Concomitant]
     Indication: PREMEDICATION
     Dosage: 0.25 MG, 2X/DAY
  8. LASILIX [Concomitant]
     Dosage: 40 MG, 1X/DAY
  9. INEXIUM /01479302/ [Concomitant]
     Dosage: 40 MG, 1X/DAY
  10. BECILAN [Concomitant]
     Indication: PREMEDICATION
     Dosage: 250 MG, 1X/DAY
  11. VOGALEN [Concomitant]
     Indication: PREMEDICATION
     Dosage: UNK
  12. SOLUPRED [Concomitant]
     Indication: PREMEDICATION
     Dosage: UNK

REACTIONS (1)
  - Headache [Not Recovered/Not Resolved]
